FAERS Safety Report 8122391-0 (Version None)
Quarter: 2012Q1

REPORT INFORMATION
  Report Type: 
  Country: None (occurrence: None)
  Receive Date: 20120208
  Receipt Date: 20120206
  Transmission Date: 20120608
  Serious: Yes (Congenital Anomaly)
  Sender: FDA-Public Use
  Company Number: US-GLAXOSMITHKLINE-A0963950A

PATIENT
  Sex: Female

DRUGS (5)
  1. PAXIL [Suspect]
     Indication: DEPRESSION
     Dosage: 20MG AT NIGHT
     Route: 064
     Dates: start: 20001129, end: 20010501
  2. LEVOXYL [Concomitant]
  3. INDERAL [Concomitant]
     Dates: end: 20010101
  4. SERZONE [Concomitant]
     Dates: start: 20010501
  5. KLONOPIN [Concomitant]
     Dosage: 1MG AT NIGHT

REACTIONS (2)
  - CARDIAC MURMUR [None]
  - FOETAL EXPOSURE DURING PREGNANCY [None]
